FAERS Safety Report 25325005 (Version 2)
Quarter: 2025Q2

REPORT INFORMATION
  Report Type: Spontaneous
  Country: JP (occurrence: JP)
  Receive Date: 20250516
  Receipt Date: 20250626
  Transmission Date: 20250717
  Serious: Yes (Death, Other)
  Sender: AMGEN
  Company Number: JP-AMGEN-JPNSP2025094037

PATIENT
  Age: 60 Year
  Sex: Male

DRUGS (15)
  1. LUMAKRAS [Suspect]
     Active Substance: SOTORASIB
     Indication: Non-small cell lung cancer
     Dosage: 960 MILLIGRAM, QD
     Route: 048
     Dates: start: 20230722, end: 20230904
  2. LUMAKRAS [Suspect]
     Active Substance: SOTORASIB
     Dosage: 480 MILLIGRAM, QD
     Route: 048
     Dates: start: 20230912, end: 20230925
  3. LUMAKRAS [Suspect]
     Active Substance: SOTORASIB
     Dosage: 240 MILLIGRAM, QD
     Route: 048
     Dates: start: 20231003, end: 20231016
  4. LUMAKRAS [Suspect]
     Active Substance: SOTORASIB
     Dosage: 720 MILLIGRAM, QD
     Route: 048
     Dates: start: 20231212, end: 20231225
  5. Bevacizumab bs [Concomitant]
     Indication: Lung adenocarcinoma
     Route: 065
     Dates: start: 202212
  6. Bevacizumab bs [Concomitant]
     Route: 065
     Dates: start: 202404
  7. URACIL [Concomitant]
     Active Substance: URACIL
  8. TEGAFUR [Concomitant]
     Active Substance: TEGAFUR
  9. ATEZOLIZUMAB [Concomitant]
     Active Substance: ATEZOLIZUMAB
  10. PACLITAXEL [Concomitant]
     Active Substance: PACLITAXEL
  11. DOCETAXEL [Concomitant]
     Active Substance: DOCETAXEL
  12. RAMUCIRUMAB [Concomitant]
     Active Substance: RAMUCIRUMAB
  13. CARBOPLATIN [Concomitant]
     Active Substance: CARBOPLATIN
  14. PEMETREXED [Concomitant]
     Active Substance: PEMETREXED
  15. AMLODIPINE [Concomitant]
     Active Substance: AMLODIPINE BESYLATE
     Indication: Hypertension
     Dates: start: 20230726

REACTIONS (5)
  - Cytopenia [Unknown]
  - Lung adenocarcinoma [Fatal]
  - Hypertension [Recovering/Resolving]
  - Drug ineffective [Unknown]
  - Diarrhoea [Recovered/Resolved]

NARRATIVE: CASE EVENT DATE: 20230722
